FAERS Safety Report 18262889 (Version 1)
Quarter: 2020Q3

REPORT INFORMATION
  Report Type: Spontaneous
  Country: US (occurrence: US)
  Receive Date: 20200914
  Receipt Date: 20200914
  Transmission Date: 20201103
  Serious: Yes (Disabling)
  Sender: FDA-Public Use
  Company Number: None

PATIENT
  Age: 33 Year
  Sex: Female
  Weight: 63 kg

DRUGS (4)
  1. OMEGA 3 [Concomitant]
     Active Substance: OMEGA-3 FATTY ACIDS
  2. CITALOPRAM [Suspect]
     Active Substance: CITALOPRAM HYDROBROMIDE
     Indication: ANXIETY
     Route: 048
     Dates: start: 20050920, end: 20200906
  3. CITALOPRAM [Suspect]
     Active Substance: CITALOPRAM HYDROBROMIDE
     Indication: PANIC ATTACK
     Route: 048
     Dates: start: 20050920, end: 20200906
  4. FOLATE [Concomitant]
     Active Substance: FOLATE SODIUM

REACTIONS (35)
  - Withdrawal syndrome [None]
  - Dizziness [None]
  - Vision blurred [None]
  - Rhinorrhoea [None]
  - Hypoaesthesia [None]
  - Anxiety [None]
  - Fatigue [None]
  - Cognitive disorder [None]
  - Depersonalisation/derealisation disorder [None]
  - Influenza like illness [None]
  - Impaired work ability [None]
  - Paraesthesia [None]
  - Migraine [None]
  - Pain [None]
  - Tremor [None]
  - Feeling cold [None]
  - Diarrhoea [None]
  - Anhedonia [None]
  - Photophobia [None]
  - Temperature intolerance [None]
  - Panic attack [None]
  - Depression [None]
  - Muscular weakness [None]
  - Hyperhidrosis [None]
  - Night sweats [None]
  - Vertigo [None]
  - Somnolence [None]
  - Muscle twitching [None]
  - Vitreous floaters [None]
  - Asthenia [None]
  - Insomnia [None]
  - Constipation [None]
  - Derealisation [None]
  - Mood swings [None]
  - Memory impairment [None]

NARRATIVE: CASE EVENT DATE: 20200206
